FAERS Safety Report 12418564 (Version 1)
Quarter: 2016Q2

REPORT INFORMATION
  Report Type: Spontaneous
  Country: JP (occurrence: JP)
  Receive Date: 20160531
  Receipt Date: 20160531
  Transmission Date: 20160815
  Serious: Yes (Other)
  Sender: FDA-Public Use
  Company Number: JP-009507513-1605JPN013521

PATIENT
  Age: 81 Year
  Sex: Female

DRUGS (2)
  1. REMERON [Suspect]
     Active Substance: MIRTAZAPINE
     Dosage: DAILY DOSAGE UNKNOWN
     Route: 048
  2. RISPERDAL [Concomitant]
     Active Substance: RISPERIDONE
     Dosage: 0.5 MG, UNK
     Route: 065

REACTIONS (3)
  - Protrusion tongue [Unknown]
  - Hiccups [Unknown]
  - Renal impairment [Unknown]

NARRATIVE: CASE EVENT DATE: 201604
